FAERS Safety Report 7431134-5 (Version None)
Quarter: 2011Q2

REPORT INFORMATION
  Report Type: 
  Country: None (occurrence: None)
  Receive Date: 20110421
  Receipt Date: 20110420
  Transmission Date: 20111010
  Serious: Yes (Other)
  Sender: FDA-Public Use
  Company Number: US-CEPHALON-2011000895

PATIENT
  Sex: Male
  Weight: 72 kg

DRUGS (1)
  1. NUVIGIL [Suspect]
     Indication: NARCOLEPSY
     Route: 048
     Dates: start: 20110216, end: 20110221

REACTIONS (5)
  - PHARYNGEAL OEDEMA [None]
  - DYSPNOEA [None]
  - LIP SWELLING [None]
  - EYE SWELLING [None]
  - HEART RATE INCREASED [None]
